FAERS Safety Report 18884302 (Version 1)
Quarter: 2021Q1

REPORT INFORMATION
  Report Type: Spontaneous
  Country: US (occurrence: US)
  Receive Date: 20210211
  Receipt Date: 20210211
  Transmission Date: 20210420
  Serious: Yes (Hospitalization)
  Sender: FDA-Public Use
  Company Number: None

PATIENT
  Age: 67 Year
  Sex: Male
  Weight: 53 kg

DRUGS (12)
  1. MIRALAX [Concomitant]
     Active Substance: POLYETHYLENE GLYCOL 3350
  2. CLOBETASOL (TEMOVATE) 0.05% OINTMENT [Concomitant]
  3. LIDOCIINE?PROLOCAINE (EMLA) CREAM [Concomitant]
  4. COLACE [Concomitant]
     Active Substance: DOCUSATE SODIUM
  5. TYLENOL [Concomitant]
     Active Substance: ACETAMINOPHEN
  6. PRILOSEC [Concomitant]
     Active Substance: OMEPRAZOLE MAGNESIUM
  7. PEMBROLIZUMAB. [Suspect]
     Active Substance: PEMBROLIZUMAB
     Indication: TRANSITIONAL CELL CANCER OF THE RENAL PELVIS AND URETER
     Route: 042
     Dates: start: 20210125
  8. COMPAZINE [Concomitant]
     Active Substance: PROCHLORPERAZINE MALEATE
  9. NOGAPENDEKIN ALFA. [Suspect]
     Active Substance: NOGAPENDEKIN ALFA
     Indication: TRANSITIONAL CELL CANCER OF THE RENAL PELVIS AND URETER
     Route: 058
     Dates: start: 20210125
  10. POTASSIUM CHLORIDE SA [Concomitant]
  11. SENNA (SENOKOT) [Concomitant]
  12. MAGNESIUM HYDROXIDE (MOM CONCENTRATED) SUSP [Concomitant]

REACTIONS (6)
  - Staphylococcal infection [None]
  - Pericardial effusion [None]
  - Blood phosphorus decreased [None]
  - Pericarditis [None]
  - Culture urine positive [None]
  - Hypercalcaemia [None]

NARRATIVE: CASE EVENT DATE: 20210203
